FAERS Safety Report 7023378-1 (Version None)
Quarter: 2010Q3

REPORT INFORMATION
  Report Type: 
  Country: None (occurrence: None)
  Receive Date: 20100930
  Receipt Date: 20100920
  Transmission Date: 20110219
  Serious: Yes (Other)
  Sender: FDA-Public Use
  Company Number: US-ELI_LILLY_AND_COMPANY-US201003002874

PATIENT
  Sex: Female

DRUGS (8)
  1. FORTEO [Suspect]
     Indication: OSTEOPOROSIS
     Dosage: 20 UG, DAILY (1/D)
     Dates: start: 20100101
  2. FORTEO [Suspect]
     Dosage: 20 UG, DAILY (1/D)
  3. FORTEO [Suspect]
     Dosage: 20 UG, DAILY (1/D)
  4. FORTEO [Suspect]
     Dosage: 20 UG, DAILY (1/D)
  5. TYLENOL (CAPLET) [Concomitant]
     Dosage: UNK, UNKNOWN
  6. CALCIUM W/VITAMIN D NOS [Concomitant]
  7. TYLENOL PM [Concomitant]
  8. ANTIHYPERTENSIVES [Concomitant]

REACTIONS (11)
  - BACK PAIN [None]
  - COUGH [None]
  - FATIGUE [None]
  - HYPERSOMNIA [None]
  - LYMPHOMA [None]
  - MUSCLE SPASMS [None]
  - NEOPLASM [None]
  - NIGHT SWEATS [None]
  - PAIN [None]
  - PAIN IN EXTREMITY [None]
  - WEIGHT DECREASED [None]
